FAERS Safety Report 5355433-6 (Version None)
Quarter: 2007Q2

REPORT INFORMATION
  Report Type: 
  Country: None (occurrence: None)
  Receive Date: 20070611
  Receipt Date: 20070611
  Transmission Date: 20071010
  Serious: Yes (Other)
  Sender: FDA-Public Use
  Company Number: None

PATIENT
  Age: 56 Year
  Sex: Male
  Weight: 70.5343 kg

DRUGS (1)
  1. ETHYOL [Suspect]
     Indication: DRY MOUTH
     Dosage: 500 MG SQ M-F X 6
     Route: 058

REACTIONS (2)
  - BODY TEMPERATURE INCREASED [None]
  - RASH MACULO-PAPULAR [None]
